FAERS Safety Report 4405964-8 (Version None)
Quarter: 2004Q3

REPORT INFORMATION
  Report Type: 
  Country: None (occurrence: None)
  Receive Date: 20040723
  Receipt Date: 20040223
  Transmission Date: 20050211
  Serious: No
  Sender: FDA-Public Use
  Company Number: US-GLAXOSMITHKLINE-A0499269A

PATIENT
  Age: 51 Year
  Sex: Female

DRUGS (2)
  1. AVANDIA [Suspect]
     Indication: DRUG USE FOR UNKNOWN INDICATION
  2. UNSPECIFIED MEDICATION [Concomitant]
     Indication: CARDIAC STRESS TEST
     Route: 058

REACTIONS (2)
  - PRURITUS [None]
  - RASH [None]
